FAERS Safety Report 16902440 (Version 2)
Quarter: 2019Q4

REPORT INFORMATION
  Report Type: Spontaneous
  Country: FR (occurrence: FR)
  Receive Date: 20191010
  Receipt Date: 20191211
  Transmission Date: 20200122
  Serious: Yes (Hospitalization)
  Sender: FDA-Public Use
  Company Number: FR-ACCORD-156889

PATIENT
  Age: 72 Year
  Sex: Male

DRUGS (12)
  1. FUROSEMIDE. [Suspect]
     Active Substance: FUROSEMIDE
     Indication: HYPERTENSION
     Route: 048
     Dates: start: 20190717, end: 201909
  2. MIANSERIN [Concomitant]
     Active Substance: MIANSERIN
  3. FLUDEX [INDAPAMIDE] [Concomitant]
     Active Substance: INDAPAMIDE
     Dosage: STRENGTH: 1.5 MG,PROLONGED-RELEASE FILM-COATED TABLETS
  4. AMIODARONE [Concomitant]
     Active Substance: AMIODARONE
  5. COLCHIMAX (COLCHICINE\PAPAVER SOMNIFERUM POWDER\TIEMONIUM METHYLSULPHATE) [Suspect]
     Active Substance: COLCHICINE\OPIUM\TIEMONIUM METHYLSULFATE
     Indication: GOUT
     Route: 048
     Dates: start: 20190828, end: 201909
  6. SILODOSIN. [Concomitant]
     Active Substance: SILODOSIN
  7. ELIQUIS [Concomitant]
     Active Substance: APIXABAN
     Dosage: STRENGTH: 5 MG
  8. PREGABALIN. [Concomitant]
     Active Substance: PREGABALIN
  9. LASILIX SPECIAL [Suspect]
     Active Substance: FUROSEMIDE
     Indication: HYPERTENSION
     Dosage: STRENGTH: 500 MG
     Route: 048
     Dates: end: 201909
  10. VALPROIC ACID. [Concomitant]
     Active Substance: VALPROIC ACID
  11. CANDESARTAN. [Concomitant]
     Active Substance: CANDESARTAN
  12. OXAZEPAM. [Concomitant]
     Active Substance: OXAZEPAM

REACTIONS (2)
  - Diarrhoea [Recovered/Resolved]
  - Acute kidney injury [Recovered/Resolved]

NARRATIVE: CASE EVENT DATE: 201908
